FAERS Safety Report 9254122 (Version 2)
Quarter: 2013Q2

REPORT INFORMATION
  Report Type: Spontaneous
  Country: US (occurrence: None)
  Receive Date: 20130422
  Receipt Date: 20130501
  Transmission Date: 20140414
  Serious: Yes (Hospitalization, Other)
  Sender: FDA-Public Use
  Company Number: AUR-APL-2013-03202

PATIENT
  Age: 49 Year
  Sex: Female
  Weight: 100 kg

DRUGS (10)
  1. VENLAFAXINE (VENLAFAXINE) [Suspect]
     Indication: CONVULSION
     Dates: start: 20130218, end: 2013
  2. VENLAFAXINE (VENLAFAXINE) [Suspect]
     Indication: ANXIETY
     Dates: start: 20130218, end: 2013
  3. SERTRALINE [Suspect]
     Indication: ANXIETY
     Dates: start: 20130218, end: 2013
  4. XANAX (ALPRAZOLAM) [Suspect]
     Indication: ANXIETY
     Dates: end: 20130126
  5. ZOLOFT (SERTRALINE) [Suspect]
     Indication: ANXIETY
     Dates: start: 20130122, end: 201301
  6. HYDROXYZINE PAMOATE [Suspect]
     Indication: ANXIETY
     Dosage: 75 MG (25 MG,3 IN 1 D)
     Dates: start: 20130218, end: 2013
  7. HYDROXYZINE PAMOATE [Suspect]
     Indication: CONVULSION
     Dosage: 75 MG (25 MG,3 IN 1 D)
     Dates: start: 20130218, end: 2013
  8. PHENYTOIN SODIUM [Suspect]
     Indication: ANXIETY
     Dates: start: 20130218, end: 2013
  9. CLONAZEPAM (CLONAZEPAM) (CLONAZEPAM) [Suspect]
     Indication: ANXIETY
     Dosage: 1 MG (0.5 MG, 2 IN 1 D)
  10. LOSARTAN (LOSARTAN) [Concomitant]

REACTIONS (7)
  - Convulsion [None]
  - Rash [None]
  - Dizziness [None]
  - Headache [None]
  - Confusional state [None]
  - Memory impairment [None]
  - Feeling abnormal [None]
